FAERS Safety Report 10205534 (Version 1)
Quarter: 2014Q2

REPORT INFORMATION
  Report Type: Spontaneous
  Country: IN (occurrence: IN)
  Receive Date: 20140529
  Receipt Date: 20140529
  Transmission Date: 20141212
  Serious: Yes (Hospitalization)
  Sender: FDA-Public Use
  Company Number: PHHY2014IN061495

PATIENT
  Age: 21 Year
  Sex: Male

DRUGS (3)
  1. LORAZEPAM [Suspect]
     Indication: OBSESSIVE-COMPULSIVE DISORDER
     Dosage: 4 MG, UNK
     Route: 042
  2. CLOMIPRAMINE [Concomitant]
     Indication: OBSESSIVE-COMPULSIVE DISORDER
     Dosage: 25 MG, AT NIGHT
  3. SERTRALINE [Concomitant]
     Indication: OBSESSIVE-COMPULSIVE DISORDER
     Dosage: 50 MG, UNK

REACTIONS (3)
  - Gait disturbance [Recovered/Resolved]
  - Diplopia [Recovered/Resolved]
  - Dizziness [Recovered/Resolved]
